FAERS Safety Report 20658193 (Version 1)
Quarter: 2022Q1

REPORT INFORMATION
  Report Type: Spontaneous
  Country: FR (occurrence: FR)
  Receive Date: 20220331
  Receipt Date: 20220331
  Transmission Date: 20220423
  Serious: Yes (Hospitalization)
  Sender: FDA-Public Use
  Company Number: None

PATIENT
  Age: 47 Year
  Sex: Female
  Weight: 93 kg

DRUGS (15)
  1. TEGRETOL XR [Suspect]
     Active Substance: CARBAMAZEPINE
     Indication: Headache
     Dosage: 1 DOSAGE FORM(1 COMPRIM? MIDI)
     Route: 048
     Dates: start: 20220214, end: 20220215
  2. TEGRETOL XR [Suspect]
     Active Substance: CARBAMAZEPINE
     Dosage: 2 DOSAGE FORM (1 COMPRIM? MATIN ET SOIR)
     Route: 048
     Dates: start: 20220215, end: 20220216
  3. TEGRETOL XR [Suspect]
     Active Substance: CARBAMAZEPINE
     Dosage: 3 DOSAGE FORM(1 COMPRIM? MATIN, MIDI ET SOIR)
     Route: 048
     Dates: start: 20220224, end: 20220228
  4. TEGRETOL XR [Suspect]
     Active Substance: CARBAMAZEPINE
     Dosage: 4 DOSAGE FORM(2 COMPRIM? MATIN ET SOIR)
     Route: 048
     Dates: start: 20220216, end: 20220221
  5. TEGRETOL XR [Suspect]
     Active Substance: CARBAMAZEPINE
     Dosage: 5 DOSAGE (2 COMPRIM? MATIN, 1 COMPRIM? MIDI ET 2 COMPRIM? SOIR )
     Route: 048
     Dates: start: 20220221, end: 20220222
  6. TEGRETOL XR [Suspect]
     Active Substance: CARBAMAZEPINE
     Dosage: 5 DOSAGE FORM(2 COMPRIM? ? MINUIT, 2 COMPRIM? ? 8 H ET 1 COMPRIM? ? 16H)
     Route: 048
     Dates: start: 20220222, end: 20220224
  7. LIORESAL [Suspect]
     Active Substance: BACLOFEN
     Indication: Muscle spasticity
     Dosage: 3 DOSAGE FORM(1 COMPRIM? MATIN, MIDI ET SOIR)
     Route: 048
     Dates: start: 20220215, end: 20220228
  8. PROZAC [Interacting]
     Active Substance: FLUOXETINE HYDROCHLORIDE
     Indication: Antidepressant therapy
     Dosage: 20 MG
     Route: 048
  9. LOVENOX [Concomitant]
     Active Substance: ENOXAPARIN SODIUM
     Indication: Thrombosis prophylaxis
     Dosage: 1 DOSAGE FORM (4 000 UI ANTI-XA/0,4 ML, )
     Route: 058
     Dates: start: 20220214
  10. AMITRIPTYLINE HYDROCHLORIDE [Concomitant]
     Active Substance: AMITRIPTYLINE HYDROCHLORIDE
     Indication: Headache
     Dosage: 25 MG, AU COUCHER
     Route: 048
     Dates: start: 20220303
  11. AMITRIPTYLINE HYDROCHLORIDE [Concomitant]
     Active Substance: AMITRIPTYLINE HYDROCHLORIDE
     Dosage: 25 MG, (5 GOUTTES MATIN ET MIDI, 15 GOUTTES AU COUCHER )
     Route: 048
     Dates: start: 20220224, end: 20220228
  12. AMITRIPTYLINE HYDROCHLORIDE [Concomitant]
     Active Substance: AMITRIPTYLINE HYDROCHLORIDE
     Dosage: 20 MG, (5 GOUTTES MATIN ET MIDI, 10 GOUTTES SOIR )
     Route: 048
     Dates: start: 20220219, end: 20220224
  13. AMITRIPTYLINE HYDROCHLORIDE [Concomitant]
     Active Substance: AMITRIPTYLINE HYDROCHLORIDE
     Dosage: 15 MG(5GOUTTES MATIN, MIDI ET SOIR )
     Route: 065
     Dates: start: 20220218, end: 20220219
  14. ROCEPHIN [Concomitant]
     Active Substance: CEFTRIAXONE SODIUM
     Indication: Infection
     Dosage: 1 G
     Route: 042
     Dates: start: 20220214, end: 20220302
  15. DALFAMPRIDINE [Concomitant]
     Active Substance: DALFAMPRIDINE
     Indication: Product used for unknown indication
     Dosage: 20 MG, MATIN ET SOIR
     Route: 048

REACTIONS (2)
  - Cholestasis [Recovering/Resolving]
  - Hepatic cytolysis [Recovering/Resolving]

NARRATIVE: CASE EVENT DATE: 20220215
